FAERS Safety Report 16401866 (Version 1)
Quarter: 2019Q2

REPORT INFORMATION
  Report Type: Spontaneous
  Country: US (occurrence: US)
  Receive Date: 20190607
  Receipt Date: 20190607
  Transmission Date: 20190711
  Serious: Yes (Other)
  Sender: FDA-Public Use
  Company Number: US-ACCORD-125861

PATIENT
  Age: 54 Year
  Sex: Female

DRUGS (6)
  1. DOCETAXEL ACCORD [Suspect]
     Active Substance: DOCETAXEL
     Indication: BREAST CANCER
     Dosage: NUMBER OF CYCLES: 07?FREQUENCY: APPROXIMATELY 2 WEEKS
     Dates: start: 20140327, end: 20140506
  2. NORCO [Concomitant]
     Active Substance: ACETAMINOPHEN\HYDROCODONE BITARTRATE
  3. HERCEPTIN [Suspect]
     Active Substance: TRASTUZUMAB
     Indication: BREAST CANCER
     Dosage: NUMBER OF CYCLES: 07?FREQUENCY: APPROXIMATELY 2 WEEKS
     Dates: start: 20140327, end: 20140506
  4. LISINOPRIL. [Concomitant]
     Active Substance: LISINOPRIL
     Dates: start: 2000
  5. METOPROLOL. [Concomitant]
     Active Substance: METOPROLOL
     Dates: start: 2000
  6. CARBOPLATIN. [Suspect]
     Active Substance: CARBOPLATIN
     Indication: BREAST CANCER
     Dosage: NUMBER OF CYCLES: 07?FREQUENCY: APPROXIMATELY 2 WEEKS
     Dates: start: 20140327, end: 20140506

REACTIONS (1)
  - Alopecia [Not Recovered/Not Resolved]
